FAERS Safety Report 5302819-1 (Version None)
Quarter: 2007Q2

REPORT INFORMATION
  Report Type: 
  Country: None (occurrence: None)
  Receive Date: 20070419
  Receipt Date: 20070411
  Transmission Date: 20071010
  Serious: Yes (Other)
  Sender: FDA-Public Use
  Company Number: BE-ABBOTT-07P-013-0364751-00

PATIENT
  Sex: Male

DRUGS (3)
  1. HUMIRA [Suspect]
     Indication: PSORIATIC ARTHROPATHY
     Route: 058
     Dates: start: 20061120
  2. MELOXICAM [Concomitant]
     Indication: PSORIATIC ARTHROPATHY
  3. PANTOPRAZOLE SODIUM [Concomitant]
     Indication: PSORIATIC ARTHROPATHY

REACTIONS (2)
  - SYSTEMIC LUPUS ERYTHEMATOSUS RASH [None]
  - TOXIC SKIN ERUPTION [None]
